FAERS Safety Report 8574127 (Version 7)
Quarter: 2013Q1

REPORT INFORMATION
  Report Type: Spontaneous
  Country: US (occurrence: US)
  Receive Date: 20120522
  Receipt Date: 20130114
  Transmission Date: 20140127
  Serious: Yes (Hospitalization, Disabling, Other)
  Sender: FDA-Public Use
  Company Number: US-009507513-1205USA02852

PATIENT
  Sex: 0

DRUGS (2)
  1. FOSAMAX [Suspect]
     Indication: OSTEOPOROSIS
     Dosage: 70 MG, QW
     Route: 048
     Dates: start: 2002, end: 201107
  2. FOSAMAX [Suspect]
     Indication: PROPHYLAXIS

REACTIONS (26)
  - Internal fixation of fracture [Unknown]
  - Femur fracture [Not Recovered/Not Resolved]
  - Osteoporosis [Not Recovered/Not Resolved]
  - Stress fracture [Not Recovered/Not Resolved]
  - Low turnover osteopathy [Not Recovered/Not Resolved]
  - Colon cancer [Unknown]
  - Electrocardiogram abnormal [Unknown]
  - Endoscopy [Unknown]
  - Caecum operation [Unknown]
  - Adverse event [Unknown]
  - Nasopharyngitis [Unknown]
  - Dysaesthesia [Unknown]
  - Pulmonary mass [Unknown]
  - Tooth loss [Not Recovered/Not Resolved]
  - Cough [Not Recovered/Not Resolved]
  - Chest pain [Not Recovered/Not Resolved]
  - Influenza like illness [Unknown]
  - Bradycardia [Unknown]
  - Malaise [Recovered/Resolved]
  - Presyncope [Recovered/Resolved]
  - Tooth disorder [Unknown]
  - Nausea [Recovered/Resolved]
  - Headache [Unknown]
  - Pain in extremity [Unknown]
  - Back pain [Not Recovered/Not Resolved]
  - Arthralgia [Not Recovered/Not Resolved]
